FAERS Safety Report 16760607 (Version 2)
Quarter: 2019Q4

REPORT INFORMATION
  Report Type: Spontaneous
  Country: US (occurrence: US)
  Receive Date: 20190830
  Receipt Date: 20191001
  Transmission Date: 20200122
  Serious: No
  Sender: FDA-Public Use
  Company Number: US-BAUSCH-BL-2019-023384

PATIENT
  Age: 65 Year
  Sex: Female
  Weight: 68.1 kg

DRUGS (1)
  1. LUMIFY [Suspect]
     Active Substance: BRIMONIDINE TARTRATE
     Indication: OCULAR HYPERAEMIA
     Dosage: USED 1 DROP IN EACH EYE ONE TIME
     Route: 047
     Dates: start: 201908, end: 201908

REACTIONS (1)
  - Eyelid disorder [Recovered/Resolved]

NARRATIVE: CASE EVENT DATE: 201908
